FAERS Safety Report 8116728-6 (Version None)
Quarter: 2012Q1

REPORT INFORMATION
  Report Type: 
  Country: None (occurrence: None)
  Receive Date: 20120206
  Receipt Date: 20120201
  Transmission Date: 20120608
  Serious: Yes (Other)
  Sender: FDA-Public Use
  Company Number: GB-BAYER-2012-007247

PATIENT
  Age: 44 Year
  Sex: Female
  Weight: 60 kg

DRUGS (5)
  1. EVENING PRIMROSE OIL [Concomitant]
     Dosage: 2000 MG, UNK
  2. CLOTRIMAZOLE [Suspect]
     Dosage: UNK
     Route: 067
     Dates: start: 20120113, end: 20120113
  3. TRANEXAMIC ACID [Concomitant]
     Dosage: 1000 MG, TID
     Dates: start: 20111127, end: 20111129
  4. MULTI-VITAMINS [Concomitant]
  5. COD LIVER OIL [Concomitant]
     Dosage: 1000 MG, UNK

REACTIONS (5)
  - VAGINAL DISCHARGE [None]
  - VAGINAL HAEMORRHAGE [None]
  - VULVOVAGINAL PAIN [None]
  - PARAESTHESIA OF GENITAL FEMALE [None]
  - VULVOVAGINAL DISCOMFORT [None]
